FAERS Safety Report 8826533 (Version 1)
Quarter: 2012Q4

REPORT INFORMATION
  Report Type: 
  Country: PL (occurrence: PL)
  Receive Date: 20121008
  Receipt Date: 20121008
  Transmission Date: 20130627
  Serious: Yes (Life-Threatening, Hospitalization)
  Sender: FDA-Public Use
  Company Number: PL-MYLANLABS-2012S1020127

PATIENT
  Age: 29 Year
  Sex: Male

DRUGS (1)
  1. DIGOXIN [Suspect]
     Indication: SUICIDE ATTEMPT
     Dosage: 22.5mg total dose
     Route: 048

REACTIONS (6)
  - Suicide attempt [Recovered/Resolved]
  - Conduction disorder [Recovered/Resolved]
  - Gastrointestinal disorder [Unknown]
  - Altered state of consciousness [Recovering/Resolving]
  - Toxicity to various agents [Recovered/Resolved]
  - Overdose [Recovered/Resolved]
